FAERS Safety Report 21931442 (Version 2)
Quarter: 2023Q2

REPORT INFORMATION
  Report Type: Spontaneous
  Country: PT (occurrence: PT)
  Receive Date: 20230131
  Receipt Date: 20230518
  Transmission Date: 20230722
  Serious: Yes (Other)
  Sender: FDA-Public Use
  Company Number: PT-AMGEN-PRTSP2023012154

PATIENT

DRUGS (2)
  1. ADALIMUMAB [Suspect]
     Active Substance: ADALIMUMAB
     Indication: Crohn^s disease
     Dosage: UNK
     Route: 065
  2. ADALIMUMAB [Suspect]
     Active Substance: ADALIMUMAB
     Indication: Colitis ulcerative

REACTIONS (20)
  - Cholestasis [Unknown]
  - Hepatic fibrosis [Unknown]
  - Amyloidosis [Unknown]
  - Nodular regenerative hyperplasia [Unknown]
  - Hepatic cirrhosis [Unknown]
  - Hepatic cytolysis [Unknown]
  - Drug-induced liver injury [Unknown]
  - Cholangitis sclerosing [Unknown]
  - Hepatitis B [Unknown]
  - Autoimmune hepatitis [Unknown]
  - Hepatitis [Unknown]
  - Haemochromatosis [Unknown]
  - Alcoholic liver disease [Unknown]
  - Primary biliary cholangitis [Unknown]
  - Alpha-1 antitrypsin deficiency [Unknown]
  - Non-alcoholic fatty liver [Unknown]
  - Antinuclear antibody increased [Unknown]
  - Hyperglobulinaemia [Unknown]
  - Hepatic siderosis [Unknown]
  - Hepatic steatosis [Unknown]
